FAERS Safety Report 17381907 (Version 2)
Quarter: 2021Q2

REPORT INFORMATION
  Report Type: Report from Study
  Country: US (occurrence: US)
  Receive Date: 20200206
  Receipt Date: 20210519
  Transmission Date: 20210716
  Serious: Yes (Hospitalization, Other)
  Sender: FDA-Public Use
  Company Number: NVSC2020US031061

PATIENT
  Age: 27 Year
  Sex: Female
  Weight: 63 kg

DRUGS (43)
  1. ALBUTEROL. [Concomitant]
     Active Substance: ALBUTEROL
     Indication: CYSTIC FIBROSIS LUNG
     Dosage: T VIAL INHALE TID, PRN
     Route: 055
     Dates: start: 20140713
  2. BENADRYL [Concomitant]
     Active Substance: DIPHENHYDRAMINE HYDROCHLORIDE
     Indication: HYPERSENSITIVITY
     Dosage: UNK UNK, Q6H
     Route: 048
     Dates: start: 20191029, end: 20191201
  3. CLONAZEPAM. [Concomitant]
     Active Substance: CLONAZEPAM
     Indication: OBSESSIVE-COMPULSIVE DISORDER
     Dosage: 4 TAB ORAL, BID, PRN
     Route: 048
     Dates: start: 20170727, end: 20210309
  4. IBUPROFEN. [Concomitant]
     Active Substance: IBUPROFEN
     Indication: ARTHRALGIA
     Dosage: UNK, BID
     Route: 048
     Dates: end: 20191201
  5. PULMOZYME [Concomitant]
     Active Substance: DORNASE ALFA
     Indication: LUNG DISORDER
     Dosage: 4 VIAL INHALE QD
     Route: 055
     Dates: start: 20131204, end: 20191201
  6. CHORIONIC GONADOTROPIN [Concomitant]
     Active Substance: CHORIOGONADOTROPIN ALFA
     Indication: ASSISTED FERTILISATION
     Dosage: 5000 IU
     Route: 030
     Dates: start: 20210211, end: 20210309
  7. ADVAIR HFA [Concomitant]
     Active Substance: FLUTICASONE PROPIONATE\SALMETEROL XINAFOATE
     Indication: CYSTIC FIBROSIS LUNG
     Dosage: 2, PUFF, INHALE BID
     Route: 055
     Dates: start: 20191022
  8. COMBIVENT RESPIMAT [Concomitant]
     Active Substance: ALBUTEROL SULFATE\IPRATROPIUM BROMIDE
     Indication: LUNG DISORDER
     Dosage: 4 PUFF ORAL
     Route: 048
     Dates: start: 20150928, end: 20210309
  9. IPRATROPIUM [Concomitant]
     Active Substance: IPRATROPIUM
     Indication: LUNG DISORDER
     Dosage: UNK, BID, 4 VIAL
     Route: 055
     Dates: start: 20150812
  10. LEVOCETIRIZINE [Concomitant]
     Active Substance: LEVOCETIRIZINE
     Indication: PRODUCT USED FOR UNKNOWN INDICATION
     Dosage: UNK
     Route: 065
  11. MIRALAX [Concomitant]
     Active Substance: POLYETHYLENE GLYCOL 3350
     Indication: CONSTIPATION
     Dosage: 17 G, BID
     Route: 048
     Dates: start: 20150812, end: 20191201
  12. ZOFRAN [Concomitant]
     Active Substance: ONDANSETRON HYDROCHLORIDE
     Indication: VOMITING
  13. FEXOFENADINE [Concomitant]
     Active Substance: FEXOFENADINE HYDROCHLORIDE
     Indication: HYPERSENSITIVITY
     Dosage: 4 DF, QD, 4 TAB ORAL QD PRN
     Route: 065
     Dates: start: 20201008, end: 20210309
  14. ONDANSETRON [Concomitant]
     Active Substance: ONDANSETRON
     Indication: VOMITING
  15. TOBRAMYCIN. [Suspect]
     Active Substance: TOBRAMYCIN
     Indication: PRODUCT USED FOR UNKNOWN INDICATION
     Route: 065
  16. CHOLECALCIFEROL [Concomitant]
     Active Substance: CHOLECALCIFEROL
     Indication: PANCREATIC FAILURE
     Dosage: 4 CAP ORAL ON SUNDAY
     Route: 048
     Dates: start: 20170602
  17. FLUOXETINE [Concomitant]
     Active Substance: FLUOXETINE HYDROCHLORIDE
     Indication: OBSESSIVE-COMPULSIVE DISORDER
     Dosage: 2 DF, QD
     Route: 048
     Dates: start: 20131204
  18. PHYTONADIONE. [Concomitant]
     Active Substance: PHYTONADIONE
     Indication: PANCREATIC FAILURE
     Dosage: 4 DF, QD
     Route: 048
     Dates: start: 20170109, end: 20191129
  19. VITAMIIN A [Concomitant]
     Indication: PANCREATIC FAILURE
     Dosage: 4 DF, QD, 4 CAP ORAL
     Route: 048
     Dates: start: 20150604
  20. ZOFRAN [Concomitant]
     Active Substance: ONDANSETRON HYDROCHLORIDE
     Indication: NAUSEA
     Dosage: UNK UNK, BID
     Route: 048
     Dates: start: 20160316, end: 20191201
  21. SIMPLY SALINE [Concomitant]
     Indication: HYPERSENSITIVITY
     Dosage: 1?2 SPRAY NOSTRIL
     Route: 065
     Dates: start: 20201008
  22. ASTELIN [Concomitant]
     Active Substance: AZELASTINE HYDROCHLORIDE
     Indication: SINUS DISORDER
  23. CLONAZEPAM. [Concomitant]
     Active Substance: CLONAZEPAM
     Indication: DEPRESSION
  24. HYDROXYCHLOROQUINE [Concomitant]
     Active Substance: HYDROXYCHLOROQUINE
     Dosage: 300 MG, QD
     Route: 048
     Dates: start: 20170615, end: 20210309
  25. PANTOPRAZOLE [Concomitant]
     Active Substance: PANTOPRAZOLE
     Indication: GASTROOESOPHAGEAL REFLUX DISEASE
     Dosage: UNK, BID
     Route: 048
     Dates: end: 20191201
  26. LARIN FE [Concomitant]
     Active Substance: ETHINYL ESTRADIOL\NORETHINDRONE ACETATE
     Indication: ASSISTED FERTILISATION
     Dosage: 4 DF, QD, 4 TAB ORAL QD
     Route: 048
     Dates: start: 20200629, end: 20210309
  27. ONDANSETRON [Concomitant]
     Active Substance: ONDANSETRON
     Indication: NAUSEA
     Dosage: 4 DF, PRN, 4 TAB
     Route: 065
     Dates: start: 20201202
  28. RIFAXIMIN. [Concomitant]
     Active Substance: RIFAXIMIN
     Indication: DIARRHOEA
     Dosage: 4 DF, TID
     Route: 048
     Dates: start: 20210211, end: 20210309
  29. ASTELIN [Concomitant]
     Active Substance: AZELASTINE HYDROCHLORIDE
     Indication: LUNG DISORDER
     Dosage: 2 DF, BID (SPRAYS INHALE)
     Route: 065
     Dates: start: 20190515
  30. GABAPENTIN. [Concomitant]
     Active Substance: GABAPENTIN
     Indication: COUGH
     Dosage: UNK UNK, TID
     Route: 048
     Dates: start: 20191217
  31. GANIRELIX ACETATE. [Concomitant]
     Active Substance: GANIRELIX ACETATE
     Indication: ASSISTED FERTILISATION
     Dosage: 250 UG, QD
     Route: 058
     Dates: start: 20210211, end: 20210309
  32. AZITHROMYCIN ANHYDROUS. [Concomitant]
     Active Substance: AZITHROMYCIN ANHYDROUS
     Indication: LUNG DISORDER
     Dosage: 4 DF, QMO (4 TAB MONDAY, WENDSDAY AND FRIDAY)
     Route: 048
     Dates: start: 20150712, end: 20210308
  33. FLUOXETINE [Concomitant]
     Active Substance: FLUOXETINE HYDROCHLORIDE
     Indication: ANXIETY
     Dosage: 2 DF, QD
     Route: 048
     Dates: start: 20191204
  34. MONTELUKAST [Concomitant]
     Active Substance: MONTELUKAST SODIUM
     Indication: LUNG DISORDER
     Dosage: 4 DF, QD
     Route: 048
     Dates: start: 20160729, end: 20191201
  35. CLONAZEPAM. [Concomitant]
     Active Substance: CLONAZEPAM
     Indication: ANXIETY
  36. FLUOXETINE [Concomitant]
     Active Substance: FLUOXETINE HYDROCHLORIDE
     Indication: DEPRESSION
  37. HYDROXYCHLOROQUINE [Concomitant]
     Active Substance: HYDROXYCHLOROQUINE
     Indication: LUNG DISORDER
     Dosage: UNK, BID
     Route: 065
     Dates: start: 20170615
  38. SODIUM CHLORIDE. [Concomitant]
     Active Substance: SODIUM CHLORIDE
     Indication: LUNG DISORDER
     Dosage: UNK UNK, BID
     Route: 065
     Dates: start: 20130204
  39. TYLENOL [Concomitant]
     Active Substance: ACETAMINOPHEN
     Indication: ARTHRALGIA
     Dosage: UNK, TID
     Route: 048
     Dates: start: 20131204, end: 20141201
  40. BETHKIS [Concomitant]
     Active Substance: TOBRAMYCIN
     Indication: LUNG DISORDER
     Dosage: UNK, BID, T VIAL INHALE
     Route: 055
     Dates: start: 20150812, end: 20210309
  41. CREON [Concomitant]
     Active Substance: PANCRELIPASE AMYLASE\PANCRELIPASE LIPASE\PANCRELIPASE PROTEASE
     Indication: LUNG DISORDER
     Dosage: 5 CAP, U CAP PO, WITH SNACKS
     Route: 065
     Dates: start: 20131204
  42. FAMOTIDINE. [Concomitant]
     Active Substance: FAMOTIDINE
     Indication: GASTROOESOPHAGEAL REFLUX DISEASE
     Dosage: UNK UNK, QD
     Route: 048
     Dates: start: 20191029, end: 20191201
  43. LOESTRIN NOS [Concomitant]
     Active Substance: ETHINYL ESTRADIOL\NORETHINDRONE ACETATE
     Indication: CONTRACEPTION
     Dosage: UNK, QD
     Route: 048
     Dates: start: 20191022, end: 20191201

REACTIONS (2)
  - Infective pulmonary exacerbation of cystic fibrosis [Recovered/Resolved]
  - Hiatus hernia [Recovered/Resolved]

NARRATIVE: CASE EVENT DATE: 20191202
